FAERS Safety Report 16409206 (Version 1)
Quarter: 2019Q2

REPORT INFORMATION
  Report Type: Spontaneous
  Country: JP (occurrence: JP)
  Receive Date: 20190610
  Receipt Date: 20190610
  Transmission Date: 20190711
  Serious: Yes (Other)
  Sender: FDA-Public Use
  Company Number: JP-ASTELLAS-2019JP011359

PATIENT
  Age: 7 Year
  Sex: Female

DRUGS (4)
  1. PREDONINE [Concomitant]
     Active Substance: PREDNISOLONE
     Indication: IGA NEPHROPATHY
     Dosage: 2 MG/KG/DAY, UNKNOWN FREQ.
     Route: 065
  2. PREDONINE [Concomitant]
     Active Substance: PREDNISOLONE
     Dosage: 5 MG/DAY, UNKNOWN FREQ.
     Route: 065
  3. TACROLIMUS. [Suspect]
     Active Substance: TACROLIMUS
     Indication: IMMUNOSUPPRESSION
     Dosage: UNK UNK, UNKNOWN FREQ.
     Route: 065
  4. PREDONINE [Concomitant]
     Active Substance: PREDNISOLONE
     Indication: IMMUNOSUPPRESSION
     Dosage: 5 MG/DAY, UNKNOWN FREQ.
     Route: 065

REACTIONS (3)
  - Hepatic failure [Unknown]
  - Infection [Unknown]
  - IgA nephropathy [Recovering/Resolving]
